FAERS Safety Report 5404973-X (Version None)
Quarter: 2007Q3

REPORT INFORMATION
  Report Type: 
  Country: None (occurrence: None)
  Receive Date: 20070801
  Receipt Date: 20070725
  Transmission Date: 20080115
  Serious: Yes (Death, Life-Threatening, Hospitalization)
  Sender: FDA-Public Use
  Company Number: 17057

PATIENT
  Age: 67 Year
  Sex: Male

DRUGS (4)
  1. MITOXANTRONE [Suspect]
     Indication: ACUTE MYELOID LEUKAEMIA
     Dates: start: 20070222, end: 20070226
  2. CYTARABINE [Suspect]
     Indication: ACUTE MYELOID LEUKAEMIA
     Dates: start: 20070222, end: 20070226
  3. CEP-701 [Suspect]
     Indication: ACUTE MYELOID LEUKAEMIA
     Dosage: 80 MCG BID; PO
     Route: 048
     Dates: start: 20070228, end: 20070310
  4. ETOPOSIDE [Suspect]
     Indication: ACUTE MYELOID LEUKAEMIA
     Dates: start: 20070222, end: 20070226

REACTIONS (15)
  - AGITATION [None]
  - ASPERGILLOSIS [None]
  - CEREBRAL INFARCTION [None]
  - FEBRILE NEUTROPENIA [None]
  - HYPERTENSION [None]
  - HYPOTENSION [None]
  - LUNG INFECTION PSEUDOMONAL [None]
  - MUCOSAL INFLAMMATION [None]
  - OEDEMA [None]
  - PNEUMONIA FUNGAL [None]
  - RENAL FAILURE ACUTE [None]
  - RESPIRATORY FAILURE [None]
  - SEPSIS [None]
  - SEPTIC EMBOLUS [None]
  - SUPRAVENTRICULAR TACHYCARDIA [None]
